FAERS Safety Report 13388525 (Version 2)
Quarter: 2017Q2

REPORT INFORMATION
  Report Type: Report from Study
  Country: BG (occurrence: BG)
  Receive Date: 20170330
  Receipt Date: 20170510
  Transmission Date: 20170830
  Serious: Yes (Other)
  Sender: FDA-Public Use
  Company Number: BG-ACTELION-A-CH2017-151643

PATIENT
  Age: 24 Year
  Sex: Male
  Weight: 78 kg

DRUGS (1)
  1. ZAVESCA [Suspect]
     Active Substance: MIGLUSTAT
     Indication: NIEMANN-PICK DISEASE
     Dosage: 200 MG, TID
     Route: 048
     Dates: start: 20140816

REACTIONS (2)
  - Hypoacusis [Unknown]
  - Sensory level abnormal [Not Recovered/Not Resolved]

NARRATIVE: CASE EVENT DATE: 20170312
